FAERS Safety Report 4401585-1 (Version None)
Quarter: 2004Q3

REPORT INFORMATION
  Report Type: 
  Country: None (occurrence: None)
  Receive Date: 20040714
  Receipt Date: 20040617
  Transmission Date: 20050211
  Serious: Yes (Hospitalization, Other)
  Sender: FDA-Public Use
  Company Number: US_0406103948

PATIENT
  Age: 75 Year
  Sex: Female

DRUGS (4)
  1. EVISTA [Suspect]
  2. FOSAMAX [Concomitant]
  3. ACTONEL [Concomitant]
  4. MIACALCIN [Concomitant]

REACTIONS (5)
  - BONE DISORDER [None]
  - CONDITION AGGRAVATED [None]
  - DYSPEPSIA [None]
  - LOCAL SWELLING [None]
  - PAIN IN EXTREMITY [None]
